FAERS Safety Report 4368321-9 (Version None)
Quarter: 2004Q2

REPORT INFORMATION
  Report Type: 
  Country: None (occurrence: None)
  Receive Date: 20040527
  Receipt Date: 20040518
  Transmission Date: 20050107
  Serious: Yes (Hospitalization, Other)
  Sender: FDA-Public Use
  Company Number: HQWYE499419FEB03

PATIENT
  Age: 63 Year
  Sex: Male

DRUGS (13)
  1. CORDARONE [Suspect]
     Indication: ATRIAL FIBRILLATION
     Dosage: SEE IMAGE
     Route: 048
     Dates: start: 20030101, end: 20030110
  2. CORDARONE [Suspect]
     Indication: ATRIAL FLUTTER
     Dosage: SEE IMAGE
     Route: 048
     Dates: start: 20030101, end: 20030110
  3. CORDARONE [Suspect]
     Indication: ATRIAL FIBRILLATION
     Dosage: SEE IMAGE
     Route: 048
     Dates: start: 20030111, end: 20030117
  4. CORDARONE [Suspect]
     Indication: ATRIAL FLUTTER
     Dosage: SEE IMAGE
     Route: 048
     Dates: start: 20030111, end: 20030117
  5. MARCUMAR [Suspect]
     Indication: ATRIAL FIBRILLATION
     Dosage: 1 TO 3 MG DAILY
     Route: 048
     Dates: start: 20030101, end: 20030117
  6. MARCUMAR [Suspect]
     Indication: ATRIAL FLUTTER
     Dosage: 1 TO 3 MG DAILY
     Route: 048
     Dates: start: 20030101, end: 20030117
  7. ZOCOR [Suspect]
     Indication: CARDIOMYOPATHY
     Dosage: 40 MG 1X PER 1 DAY; FEW WEEKS
     Route: 048
     Dates: end: 20030113
  8. BELOC (METOPROLOL TARTRATE) [Concomitant]
  9. NITRODERM [Concomitant]
  10. LASIX [Concomitant]
  11. INSULIN MIXTARD (INSULIN INJECTION, ISOPHANE) [Concomitant]
  12. INSULIN HUMAN INSULATARD (INSULIN HUMAN INJECTION, ISOPHANE) [Concomitant]
  13. ASPIRIN [Concomitant]

REACTIONS (2)
  - DRUG INTERACTION [None]
  - RHABDOMYOLYSIS [None]
